FAERS Safety Report 9743617 (Version 3)
Quarter: 2013Q4

REPORT INFORMATION
  Report Type: Spontaneous
  Country: US (occurrence: US)
  Receive Date: 20131210
  Receipt Date: 20131212
  Transmission Date: 20140711
  Serious: Yes (Other)
  Sender: FDA-Public Use
  Company Number: US-TEVA-381955USA

PATIENT
  Age: 22 Year
  Sex: Female
  Weight: 79 kg

DRUGS (2)
  1. PARAGARD 380A [Suspect]
     Indication: CONTRACEPTION
     Route: 015
     Dates: start: 20121227, end: 20130116
  2. PERCOCET [Concomitant]
     Indication: PAIN
     Dosage: 4-6 PRN

REACTIONS (4)
  - Vaginal haemorrhage [Unknown]
  - Device dislocation [Recovered/Resolved]
  - Pelvic pain [Recovered/Resolved]
  - Menorrhagia [Not Recovered/Not Resolved]
